FAERS Safety Report 7808018-3 (Version None)
Quarter: 2011Q4

REPORT INFORMATION
  Report Type: 
  Country: None (occurrence: None)
  Receive Date: 20111011
  Receipt Date: 20111011
  Transmission Date: 20120403
  Serious: Yes (Other)
  Sender: FDA-Public Use
  Company Number: None

PATIENT
  Sex: Male
  Weight: 99.79 kg

DRUGS (6)
  1. VICTOZA [Suspect]
     Indication: GLUCOSE TOLERANCE IMPAIRED
     Dosage: .6MG
     Route: 058
     Dates: start: 20110901, end: 20110930
  2. ANASTROZOLE [Concomitant]
  3. CHANTIX [Concomitant]
  4. AVODART [Concomitant]
  5. DIOVAN [Concomitant]
  6. YOHIMBINE [Concomitant]

REACTIONS (2)
  - INJECTION SITE RASH [None]
  - INJECTION SITE ERYTHEMA [None]
